FAERS Safety Report 10047816 (Version 1)
Quarter: 2014Q1

REPORT INFORMATION
  Report Type: Spontaneous
  Country: US (occurrence: None)
  Receive Date: 20140306
  Receipt Date: 20140306
  Transmission Date: 20141002
  Serious: Yes (Other)
  Sender: FDA-Public Use
  Company Number: 163-21880-13100164

PATIENT
  Age: 60 Year
  Sex: Male

DRUGS (5)
  1. REVLIMID [Suspect]
     Indication: PLASMA CELL MYELOMA
     Dosage: 21 IN 28 D
     Route: 048
     Dates: start: 20070514
  2. CENTRUM MULTIVITAMIN (CENTRUM) [Concomitant]
  3. DEXAMETHASONE (DEXAMETHASONE) [Concomitant]
  4. DIOVAN HCT (CO-DIOVAN) [Concomitant]
  5. ISTALOL (TIMOLOL MALEATE) (EAR DROPS) [Concomitant]

REACTIONS (1)
  - Thrombosis [None]
